FAERS Safety Report 5113556-0 (Version None)
Quarter: 2006Q3

REPORT INFORMATION
  Report Type: 
  Country: None (occurrence: None)
  Receive Date: 20060920
  Receipt Date: 20060831
  Transmission Date: 20061208
  Serious: Yes (Death, Hospitalization, Other)
  Sender: FDA-Public Use
  Company Number: JP200607002794

PATIENT
  Age: 53 Year
  Sex: Female

DRUGS (8)
  1. GEMZAR [Suspect]
     Indication: PANCREATIC CARCINOMA
     Dosage: SEE IMAGE, INTRAMUSCULAR
     Route: 030
     Dates: start: 20020225, end: 20021225
  2. GEMZAR [Suspect]
     Indication: PANCREATIC CARCINOMA
     Dosage: SEE IMAGE, INTRAMUSCULAR
     Route: 030
     Dates: start: 20030808, end: 20031107
  3. CISPLATIN [Concomitant]
  4. TAXOTERE [Concomitant]
  5. UFT (TEGAFUR URACIL) CAPSULE [Concomitant]
  6. TS 1 (GIMERACIL, OTERACIL POTASSIUM, TEGAFUR) [Concomitant]
  7. GLYBURIDE [Concomitant]
  8. VOLTAREN [Concomitant]

REACTIONS (18)
  - ALANINE AMINOTRANSFERASE INCREASED [None]
  - ASPARTATE AMINOTRANSFERASE INCREASED [None]
  - BACK PAIN [None]
  - BLOOD ALKALINE PHOSPHATASE INCREASED [None]
  - BLOOD LACTATE DEHYDROGENASE INCREASED [None]
  - BLOOD UREA INCREASED [None]
  - CHILLS [None]
  - GAMMA-GLUTAMYLTRANSFERASE INCREASED [None]
  - GENERAL PHYSICAL HEALTH DETERIORATION [None]
  - GLUCOSE TOLERANCE DECREASED [None]
  - HAEMOGLOBIN DECREASED [None]
  - HYDRONEPHROSIS [None]
  - LYMPHADENOPATHY [None]
  - PANCREATIC CARCINOMA RECURRENT [None]
  - PLATELET COUNT DECREASED [None]
  - PNEUMONITIS [None]
  - PYREXIA [None]
  - RESPIRATORY FAILURE [None]
